FAERS Safety Report 13106838 (Version 1)
Quarter: 2017Q1

REPORT INFORMATION
  Report Type: Spontaneous
  Country: US (occurrence: US)
  Receive Date: 20170111
  Receipt Date: 20170111
  Transmission Date: 20170428
  Serious: No
  Sender: FDA-Public Use
  Company Number: US-TEIKOKU PHARMA USA-TPU2017-00009

PATIENT
  Sex: Female
  Weight: 67.19 kg

DRUGS (6)
  1. METOPROLOL SUCCINATE. [Concomitant]
     Active Substance: METOPROLOL SUCCINATE
     Indication: BLOOD PRESSURE MEASUREMENT
  2. LIDOCAINE PATCH [Suspect]
     Active Substance: LIDOCAINE
     Indication: ARTHRITIS
     Dosage: UP TO 6 STRIPS CUT FROM PATCH, BELOW THE KNEE, SIDE OF THE KNEE AND SOMETIMES BACK OF THE KNEE, AS N
     Route: 061
  3. FOSINOPRIL [Concomitant]
     Active Substance: FOSINOPRIL
     Indication: BLOOD PRESSURE MEASUREMENT
  4. UNKNOWN DIABETES MEDICATION [Concomitant]
     Active Substance: UNSPECIFIED INGREDIENT
     Indication: DIABETES MELLITUS
  5. UNKNOWN THYROID MEDICATION [Concomitant]
     Active Substance: UNSPECIFIED INGREDIENT
  6. ALEVE [Concomitant]
     Active Substance: NAPROXEN SODIUM
     Indication: ARTHRALGIA

REACTIONS (3)
  - Application site irritation [Unknown]
  - Body height decreased [Not Recovered/Not Resolved]
  - Application site paraesthesia [Unknown]
